FAERS Safety Report 4697036-2 (Version None)
Quarter: 2005Q2

REPORT INFORMATION
  Report Type: 
  Country: None (occurrence: None)
  Receive Date: 20050620
  Receipt Date: 20050422
  Transmission Date: 20051028
  Serious: No
  Sender: FDA-Public Use
  Company Number: US-YAMANOUCHI-YPA20050215

PATIENT
  Age: 75 Year
  Sex: Male
  Weight: 72.5755 kg

DRUGS (4)
  1. VESICARE [Suspect]
     Indication: BLADDER DISORDER
     Dosage: 5 MG QD PO
     Route: 048
     Dates: start: 20050401
  2. VESICARE [Suspect]
     Indication: PROSTATIC DISORDER
     Dosage: 5 MG QD PO
     Route: 048
     Dates: start: 20050401
  3. FLOMAX [Concomitant]
  4. ASPIRIN [Concomitant]

REACTIONS (2)
  - DRY MOUTH [None]
  - RASH [None]
